FAERS Safety Report 5150539-9 (Version None)
Quarter: 2006Q4

REPORT INFORMATION
  Report Type: 
  Country: None (occurrence: None)
  Receive Date: 20061110
  Receipt Date: 20061110
  Transmission Date: 20070319
  Serious: Yes (Hospitalization)
  Sender: FDA-Public Use
  Company Number: None

PATIENT
  Sex: Male
  Weight: 99.7913 kg

DRUGS (1)
  1. EQUATE EXTRA STRENGTH PAIN    500 MG    PERRIGO [Suspect]
     Indication: PAIN
     Dosage: 500 MG   5X -WEEK-   PO
     Route: 048

REACTIONS (3)
  - DUODENAL ULCER [None]
  - PHARMACEUTICAL PRODUCT COMPLAINT [None]
  - POOR QUALITY DRUG ADMINISTERED [None]
